FAERS Safety Report 23185773 (Version 1)
Quarter: 2023Q4

REPORT INFORMATION
  Report Type: Spontaneous
  Country: US (occurrence: US)
  Receive Date: 20231115
  Receipt Date: 20231115
  Transmission Date: 20240109
  Serious: No
  Sender: FDA-Public Use
  Company Number: US-OTSUKA-2023_025943

PATIENT
  Sex: Male
  Weight: 70.31 kg

DRUGS (1)
  1. NUEDEXTA [Suspect]
     Active Substance: DEXTROMETHORPHAN HYDROBROMIDE\QUINIDINE SULFATE
     Indication: Brain injury
     Dosage: 1 DF (20-10 MG), BID
     Route: 065

REACTIONS (3)
  - Drug effective for unapproved indication [Unknown]
  - Inability to afford medication [Unknown]
  - Insurance issue [Unknown]
